FAERS Safety Report 4723168-6 (Version None)
Quarter: 2005Q3

REPORT INFORMATION
  Report Type: 
  Country: None (occurrence: None)
  Receive Date: 20050719
  Receipt Date: 20040810
  Transmission Date: 20060218
  Serious: Yes (Other)
  Sender: FDA-Public Use
  Company Number: 2004228052US

PATIENT
  Age: 64 Year
  Sex: Female
  Weight: 136.1 kg

DRUGS (3)
  1. CELEBREX [Suspect]
     Indication: ARTHRITIS
     Dosage: SEE IMAGE
     Route: 048
  2. ZYRTEC [Suspect]
     Indication: HYPERSENSITIVITY
     Route: 065
     Dates: end: 20040101
  3. ANTIHYPERTENSIVES [Concomitant]

REACTIONS (2)
  - HAEMATOCHEZIA [None]
  - SOMNOLENCE [None]
